FAERS Safety Report 23642270 (Version 2)
Quarter: 2024Q1

REPORT INFORMATION
  Report Type: Spontaneous
  Country: JP (occurrence: JP)
  Receive Date: 20240318
  Receipt Date: 20240321
  Transmission Date: 20240410
  Serious: Yes (Death, Hospitalization, Other)
  Sender: FDA-Public Use
  Company Number: JP-TEVA-VS-3169857

PATIENT
  Age: 88 Year
  Sex: Male

DRUGS (1)
  1. LANSOPRAZOLE [Suspect]
     Active Substance: LANSOPRAZOLE
     Indication: Haematemesis
     Dosage: 30 MILLIGRAM, TIME INTERVAL: TOTAL: AROUND 17:00, INTRAVENOUS
     Route: 042
     Dates: start: 20240304, end: 20240304

REACTIONS (2)
  - Multiple organ dysfunction syndrome [Fatal]
  - Skin exfoliation [Unknown]

NARRATIVE: CASE EVENT DATE: 20240305
